FAERS Safety Report 9321413 (Version 2)
Quarter: 2013Q2

REPORT INFORMATION
  Report Type: Spontaneous
  Country: FI (occurrence: None)
  Receive Date: 20130528
  Receipt Date: 20130618
  Transmission Date: 20140414
  Serious: Yes (Hospitalization)
  Sender: FDA-Public Use
  Company Number: FI-1198366

PATIENT
  Age: 67 Year
  Sex: Female

DRUGS (3)
  1. AZOPT [Suspect]
     Indication: GLAUCOMA
     Dates: start: 20121002, end: 20130226
  2. XALATAN [Concomitant]
  3. MAREVAN [Concomitant]

REACTIONS (2)
  - Convulsion [None]
  - Atrial fibrillation [None]
